FAERS Safety Report 5168188-5 (Version None)
Quarter: 2006Q4

REPORT INFORMATION
  Report Type: 
  Country: None (occurrence: None)
  Receive Date: 20061130
  Receipt Date: 20061115
  Transmission Date: 20070319
  Serious: Yes (Life-Threatening, Hospitalization, Other)
  Sender: FDA-Public Use
  Company Number: 2006123130

PATIENT
  Age: 16 Year
  Sex: Female

DRUGS (9)
  1. CELEBREX [Suspect]
     Indication: OEDEMA PERIPHERAL
     Dosage: 400 MG (200 MG, 2 IN 1 D), ORAL
     Route: 048
     Dates: start: 20041001
  2. CELEBREX [Suspect]
     Indication: PAIN IN EXTREMITY
     Dosage: 400 MG (200 MG, 2 IN 1 D), ORAL
     Route: 048
     Dates: start: 20041001
  3. CELEBREX [Suspect]
     Indication: PSORIATIC ARTHROPATHY
     Dosage: 400 MG (200 MG, 2 IN 1 D), ORAL
     Route: 048
     Dates: start: 20041001
  4. METHOTREXATE [Concomitant]
  5. FOLIC ACID [Concomitant]
  6. PREDNISONE TAB [Concomitant]
  7. EFFEXOR [Concomitant]
  8. PEPCID [Concomitant]
  9. ORAL CONTRACEPTIVE NOS (ORAL CONTRACEPTIVE NOS) [Concomitant]

REACTIONS (7)
  - CARDIAC ARREST [None]
  - FASCIECTOMY [None]
  - HYPERCOAGULATION [None]
  - PAIN IN EXTREMITY [None]
  - PULMONARY EMBOLISM [None]
  - RESPIRATORY DISTRESS [None]
  - SYNCOPE [None]
